FAERS Safety Report 4315780-3 (Version None)
Quarter: 2004Q1

REPORT INFORMATION
  Report Type: 
  Country: None (occurrence: None)
  Receive Date: 20040310
  Receipt Date: 20040228
  Transmission Date: 20041129
  Serious: Yes (Hospitalization, Other)
  Sender: FDA-Public Use
  Company Number: 2004013679

PATIENT
  Age: 83 Year
  Sex: Female
  Weight: 66.6788 kg

DRUGS (1)
  1. GLUCOTROL XL [Suspect]
     Indication: DIABETES MELLITUS
     Dosage: 10 MG (DAILY), ORAL
     Route: 048
     Dates: end: 20040201

REACTIONS (1)
  - ARTERIAL OCCLUSIVE DISEASE [None]
